FAERS Safety Report 4592764-1 (Version None)
Quarter: 2005Q1

REPORT INFORMATION
  Report Type: 
  Country: None (occurrence: None)
  Receive Date: 20050222
  Receipt Date: 20050209
  Transmission Date: 20050727
  Serious: Yes (Death)
  Sender: FDA-Public Use
  Company Number: 2005-FF-00095FF

PATIENT
  Age: 70 Year
  Sex: Female

DRUGS (2)
  1. ATROVENT [Suspect]
     Indication: PULMONARY CONGESTION
     Route: 055
     Dates: start: 20041130
  2. BRICANYL [Suspect]
     Indication: PULMONARY CONGESTION
     Dates: start: 20041130

REACTIONS (4)
  - BRONCHOSPASM [None]
  - COUGH [None]
  - DIALYSIS [None]
  - HAEMOTHORAX [None]
